FAERS Safety Report 6694012-5 (Version None)
Quarter: 2010Q2

REPORT INFORMATION
  Report Type: 
  Country: None (occurrence: None)
  Receive Date: 20100423
  Receipt Date: 20100420
  Transmission Date: 20101027
  Serious: Yes (Other)
  Sender: FDA-Public Use
  Company Number: US-BAYER-201014512BCC

PATIENT
  Age: 78 Year
  Sex: Female
  Weight: 83 kg

DRUGS (5)
  1. ALEVE [Suspect]
     Indication: PAIN
     Dosage: TOTAL DAILY DOSE: 440 MG  UNIT DOSE: 220 MG
     Route: 048
     Dates: start: 20100419
  2. VICODIN [Concomitant]
     Route: 065
  3. COZAAR [Concomitant]
     Route: 065
  4. BYSTOLIC [Concomitant]
     Route: 065
  5. EQUATE MATURE COMPLETE MULTIVITAMIN [Concomitant]
     Route: 065

REACTIONS (2)
  - BLOOD PRESSURE INCREASED [None]
  - EPISTAXIS [None]
